FAERS Safety Report 5743590-9 (Version None)
Quarter: 2008Q2

REPORT INFORMATION
  Report Type: 
  Country: None (occurrence: None)
  Receive Date: 20080520
  Receipt Date: 20080513
  Transmission Date: 20081010
  Serious: Yes (Other)
  Sender: FDA-Public Use
  Company Number: PHFR2008GB01403

PATIENT
  Sex: Female

DRUGS (1)
  1. DESERIL [Suspect]
     Indication: MIGRAINE
     Route: 065
     Dates: end: 20050101

REACTIONS (1)
  - MULTIPLE SCLEROSIS [None]
